FAERS Safety Report 8860908 (Version 1)
Quarter: 2012Q4

REPORT INFORMATION
  Report Type: 
  Country: US (occurrence: US)
  Receive Date: 20121025
  Receipt Date: 20121025
  Transmission Date: 20130627
  Serious: Yes (Other)
  Sender: FDA-Public Use
  Company Number: CHPA2012US022050

PATIENT
  Age: 39 Year
  Sex: Male

DRUGS (1)
  1. MAALOX ANTACID/ANTIGAS MAX QDTABS WILDB [Suspect]
     Indication: GASTROOESOPHAGEAL REFLUX DISEASE
     Dosage: 2 tablets, 3 to 4 times per week
     Route: 048
     Dates: start: 2003

REACTIONS (2)
  - Intervertebral disc degeneration [Not Recovered/Not Resolved]
  - Off label use [Unknown]
